FAERS Safety Report 4712362-6 (Version None)
Quarter: 2005Q3

REPORT INFORMATION
  Report Type: 
  Country: None (occurrence: None)
  Receive Date: 20050712
  Receipt Date: 20050627
  Transmission Date: 20060218
  Serious: Yes (Other)
  Sender: FDA-Public Use
  Company Number: B0384393A

PATIENT
  Age: 57 Year
  Sex: Male

DRUGS (7)
  1. SALBUTAMOL SULPHATE NEBULISER SOLUTION (ALBUTEROL SULFATE) [Suspect]
     Indication: PREMEDICATION
  2. ATRACURIUM BESYLATE [Suspect]
     Indication: ANAESTHESIA
  3. OMEPRAZOLE [Suspect]
     Indication: PREMEDICATION
  4. MIDAZOLAM HCL [Suspect]
     Indication: ANAESTHESIA
  5. FENTANYL [Suspect]
     Indication: ANAESTHESIA
  6. PROPOFOL [Suspect]
     Indication: ANAESTHESIA
  7. FLUTICASONE PROPIONATE [Concomitant]

REACTIONS (8)
  - ANAPHYLACTIC REACTION [None]
  - DRUG INEFFECTIVE [None]
  - FIBRINOLYSIS [None]
  - GENERALISED ERYTHEMA [None]
  - HYPOTENSION [None]
  - INFUSION RELATED REACTION [None]
  - SKIN TEST POSITIVE [None]
  - TACHYCARDIA [None]
